FAERS Safety Report 16183123 (Version 2)
Quarter: 2019Q2

REPORT INFORMATION
  Report Type: Spontaneous
  Country: CA (occurrence: CA)
  Receive Date: 20190411
  Receipt Date: 20190417
  Transmission Date: 20190711
  Serious: Yes (Other)
  Sender: FDA-Public Use
  Company Number: CA-ORION CORPORATION ORION PHARMA-TREX2019-0980

PATIENT
  Age: 72 Year
  Sex: Female

DRUGS (2)
  1. ARAVA [Concomitant]
     Active Substance: LEFLUNOMIDE
     Route: 065
  2. METHOTREXATE (TRADE NAME UNKNOWN) [Suspect]
     Active Substance: METHOTREXATE
     Indication: PRODUCT USED FOR UNKNOWN INDICATION
     Route: 065

REACTIONS (7)
  - Osteoarthritis [Unknown]
  - Cough [Recovering/Resolving]
  - Nasopharyngitis [Not Recovered/Not Resolved]
  - Pneumonia [Unknown]
  - Peripheral swelling [Unknown]
  - Taste disorder [Unknown]
  - Pain in extremity [Unknown]
